FAERS Safety Report 25822088 (Version 1)
Quarter: 2025Q3

REPORT INFORMATION
  Report Type: Spontaneous
  Country: US (occurrence: US)
  Receive Date: 20250919
  Receipt Date: 20250919
  Transmission Date: 20251020
  Serious: No
  Sender: VIVUS
  Company Number: US-VIVUS LLC-2024V1001212

PATIENT

DRUGS (2)
  1. QSYMIA [Suspect]
     Active Substance: PHENTERMINE HYDROCHLORIDE\TOPIRAMATE
     Indication: Product used for unknown indication
     Dosage: 1 DOSAGE FORMS, QD
     Route: 048
  2. QSYMIA [Suspect]
     Active Substance: PHENTERMINE HYDROCHLORIDE\TOPIRAMATE
     Indication: Product used for unknown indication
     Dosage: 1 DOSAGE FORMS, QD
     Route: 048

REACTIONS (1)
  - Fibromyalgia [Not Recovered/Not Resolved]
